FAERS Safety Report 23104931 (Version 1)
Quarter: 2023Q4

REPORT INFORMATION
  Report Type: Report from Study
  Country: US (occurrence: US)
  Receive Date: 20231025
  Receipt Date: 20231025
  Transmission Date: 20240109
  Serious: Yes (Other)
  Sender: FDA-Public Use
  Company Number: US-ABBVIE-5462290

PATIENT
  Sex: Female

DRUGS (2)
  1. VENCLEXTA [Suspect]
     Active Substance: VENETOCLAX
     Indication: Myelodysplastic syndrome
     Dosage: LAST ADMIN: 2023
     Route: 048
     Dates: start: 20230815
  2. XOSPATA [Concomitant]
     Active Substance: GILTERITINIB
     Indication: Myelodysplastic syndrome
     Dates: start: 20230511

REACTIONS (3)
  - Platelet transfusion [Unknown]
  - Transfusion [Unknown]
  - Nausea [Unknown]

NARRATIVE: CASE EVENT DATE: 20230101
